FAERS Safety Report 17152138 (Version 1)
Quarter: 2019Q4

REPORT INFORMATION
  Report Type: Spontaneous
  Country: US (occurrence: US)
  Receive Date: 20191213
  Receipt Date: 20191213
  Transmission Date: 20200122
  Serious: No
  Sender: FDA-Public Use
  Company Number: US-SOMERSET-2019-US-000072

PATIENT
  Age: 22 Year
  Sex: Male

DRUGS (1)
  1. TOBRAMYCIN OPHTHALMIC SOLUTION USP, 0.3% [Suspect]
     Active Substance: TOBRAMYCIN
     Dosage: DOSAGE IS 2 DROPS IN LEFT EYE EVERY 2-3 HOURS
     Dates: start: 20191127, end: 20191129

REACTIONS (1)
  - Drug ineffective [Unknown]

NARRATIVE: CASE EVENT DATE: 20191127
